FAERS Safety Report 4399701-3 (Version None)
Quarter: 2004Q3

REPORT INFORMATION
  Report Type: 
  Country: None (occurrence: None)
  Receive Date: 20040713
  Receipt Date: 20040629
  Transmission Date: 20050211
  Serious: Yes (Other)
  Sender: FDA-Public Use
  Company Number: US-JNJFOC-20030806012

PATIENT
  Age: 22 Year
  Sex: Female
  Weight: 122.4712 kg

DRUGS (18)
  1. REMICADE [Suspect]
     Indication: CROHN'S DISEASE
     Dosage: , 1 IN 1 DAY; INTRAVENOUS (SEE IMAGE)
     Route: 042
     Dates: start: 20030124
  2. REMICADE [Suspect]
     Indication: CROHN'S DISEASE
     Dosage: , 1 IN 1 DAY; INTRAVENOUS (SEE IMAGE)
     Route: 042
     Dates: start: 20030307
  3. REMICADE [Suspect]
     Indication: CROHN'S DISEASE
     Dosage: , 1 IN 1 DAY; INTRAVENOUS (SEE IMAGE)
     Route: 042
     Dates: start: 20030418
  4. REMICADE [Suspect]
     Indication: CROHN'S DISEASE
     Dosage: , 1 IN 1 DAY; INTRAVENOUS (SEE IMAGE)
     Route: 042
     Dates: start: 20030618
  5. REMICADE [Suspect]
     Indication: CROHN'S DISEASE
     Dosage: , 1 IN 1 DAY; INTRAVENOUS (SEE IMAGE)
     Route: 042
     Dates: start: 20030622
  6. REMICADE [Suspect]
     Indication: CROHN'S DISEASE
     Dosage: , 1 IN 1 DAY; INTRAVENOUS (SEE IMAGE)
     Route: 042
     Dates: start: 20030807
  7. IMMODIUM (LOPERAMIDE HYDROCHLORIDE) [Concomitant]
  8. RESTORIL [Concomitant]
  9. PREDNISONE [Concomitant]
  10. AMBIEN [Concomitant]
  11. MEPERGAN FORTIS (MEPERGAN) [Concomitant]
  12. PERCOCET [Concomitant]
  13. REGLAN [Concomitant]
  14. PROCARDIA XL [Concomitant]
  15. PRENATAL VITAMIN (PRENATAL VITAMINS) [Concomitant]
  16. PREVACID [Concomitant]
  17. REGLAN [Concomitant]
  18. ZYRTEC [Concomitant]

REACTIONS (5)
  - ABORTION INDUCED [None]
  - BLOOD PRESSURE INCREASED [None]
  - CONDITION AGGRAVATED [None]
  - DRUG EXPOSURE DURING PREGNANCY [None]
  - PREGNANCY [None]
